FAERS Safety Report 4605031-4 (Version None)
Quarter: 2005Q1

REPORT INFORMATION
  Report Type: 
  Country: None (occurrence: None)
  Receive Date: 20050311
  Receipt Date: 20050303
  Transmission Date: 20050727
  Serious: Yes (Life-Threatening)
  Sender: FDA-Public Use
  Company Number: 200510786FR

PATIENT
  Age: 76 Year
  Sex: Male

DRUGS (3)
  1. LASILIX [Suspect]
     Route: 048
     Dates: start: 20041101, end: 20041130
  2. BIPRETERAX [Suspect]
     Route: 048
     Dates: start: 20041101, end: 20041130
  3. ALDACTONE [Suspect]
     Route: 048
     Dates: start: 20041101, end: 20041130

REACTIONS (6)
  - BUNDLE BRANCH BLOCK RIGHT [None]
  - DEHYDRATION [None]
  - DEPRESSED LEVEL OF CONSCIOUSNESS [None]
  - HYPONATRAEMIA [None]
  - MYOCLONUS [None]
  - RENAL FAILURE ACUTE [None]
